FAERS Safety Report 4920519-4 (Version None)
Quarter: 2006Q1

REPORT INFORMATION
  Report Type: 
  Country: None (occurrence: None)
  Receive Date: 20060223
  Receipt Date: 20060116
  Transmission Date: 20060701
  Serious: Yes (Other)
  Sender: FDA-Public Use
  Company Number: JP-SANOFI-SYNTHELABO-A01200600379

PATIENT
  Age: 80 Year
  Sex: Female
  Weight: 37 kg

DRUGS (6)
  1. MYSLEE [Suspect]
     Indication: INSOMNIA
     Dosage: 10 MG
     Route: 048
     Dates: start: 20060112, end: 20060112
  2. MARZULENE S [Concomitant]
     Indication: GASTRITIS
     Dosage: 2 G
     Route: 048
  3. SELBEX [Concomitant]
     Indication: GASTRITIS
     Dosage: 1.5 G
     Route: 048
  4. CEROCRAL [Concomitant]
     Indication: VERTEBROBASILAR INSUFFICIENCY
     Dosage: 30 MG
     Route: 048
  5. NORVASC [Concomitant]
     Indication: HYPERTENSION
     Dosage: 5 MG
     Route: 048
  6. MICARDIS [Concomitant]
     Indication: HYPERTENSION
     Dosage: 20 MG
     Route: 048

REACTIONS (1)
  - MONOPARESIS [None]
